FAERS Safety Report 14314919 (Version 10)
Quarter: 2019Q1

REPORT INFORMATION
  Report Type: Spontaneous
  Country: GR (occurrence: GR)
  Receive Date: 20171221
  Receipt Date: 20190325
  Transmission Date: 20190417
  Serious: Yes (Other)
  Sender: FDA-Public Use
  Company Number: GR-ELI_LILLY_AND_COMPANY-GR201712006788

PATIENT
  Age: 62 Year
  Sex: Female

DRUGS (38)
  1. CARBOPLATIN. [Suspect]
     Active Substance: CARBOPLATIN
     Indication: BREAST CANCER METASTATIC
     Dosage: 01 DF, CYCLICAL
     Route: 065
     Dates: start: 2009
  2. ERIBULIN [Suspect]
     Active Substance: ERIBULIN
     Indication: RECURRENT CANCER
  3. FLUOROURACIL. [Suspect]
     Active Substance: FLUOROURACIL
     Dosage: 1 DF, DAILY
     Route: 065
     Dates: start: 2006
  4. PACLITAXEL. [Suspect]
     Active Substance: PACLITAXEL
     Indication: BREAST CANCER METASTATIC
     Dosage: 01 DF, CYCLICAL
     Route: 065
     Dates: start: 2006
  5. EPIRUBICIN [Suspect]
     Active Substance: EPIRUBICIN
     Indication: BREAST CANCER METASTATIC
     Dosage: 01 DF, CYCLICAL
     Route: 001
     Dates: start: 2006
  6. LAPATINIB [Suspect]
     Active Substance: LAPATINIB
     Indication: METASTATIC MALIGNANT MELANOMA
  7. ERIBULIN [Suspect]
     Active Substance: ERIBULIN
     Indication: BREAST CANCER METASTATIC
     Dosage: 01 DF, CYCLICAL
     Route: 042
     Dates: start: 2009
  8. VINORELBINE [Suspect]
     Active Substance: VINORELBINE\VINORELBINE TARTRATE
     Indication: BREAST CANCER METASTATIC
     Dosage: 01 DF, CYCLICAL
     Route: 065
     Dates: start: 2009
  9. FULVESTRANT. [Suspect]
     Active Substance: FULVESTRANT
     Indication: BREAST CANCER METASTATIC
     Dosage: 01 DF, CYCLICAL
     Route: 030
     Dates: start: 2009
  10. TAMOXIFEN CITRATE. [Suspect]
     Active Substance: TAMOXIFEN CITRATE
     Indication: RECURRENT CANCER
     Dosage: 01 DF, CYCLICAL
     Route: 048
     Dates: start: 2009
  11. EXEMESTANE. [Suspect]
     Active Substance: EXEMESTANE
     Indication: BREAST CANCER METASTATIC
     Dosage: 01 DF, CYCLICAL
     Route: 065
     Dates: start: 2009
  12. EXEMESTANE. [Suspect]
     Active Substance: EXEMESTANE
     Indication: RECURRENT CANCER
     Dosage: 1 DF, DAILY
     Route: 065
     Dates: start: 2009
  13. FLUOROURACIL. [Suspect]
     Active Substance: FLUOROURACIL
     Indication: BREAST CANCER METASTATIC
     Dosage: 1 DF, CYCLICAL
     Route: 065
     Dates: start: 2006
  14. EVEROLIMUS. [Suspect]
     Active Substance: EVEROLIMUS
     Indication: RECURRENT CANCER
     Dosage: 1 DF, DAILY
     Route: 065
     Dates: start: 2009
  15. GEMCITABINE HYDROCHLORIDE. [Suspect]
     Active Substance: GEMCITABINE HYDROCHLORIDE
     Indication: BREAST CANCER METASTATIC
     Dosage: 01 DF, CYCLICAL
     Route: 065
     Dates: start: 2009
  16. DOCETAXEL. [Suspect]
     Active Substance: DOCETAXEL
     Indication: RECURRENT CANCER
  17. FULVESTRANT. [Suspect]
     Active Substance: FULVESTRANT
     Indication: RECURRENT CANCER
     Dosage: 1 DF, DAILY
     Route: 030
     Dates: start: 2009
  18. FULVESTRANT. [Suspect]
     Active Substance: FULVESTRANT
     Indication: METASTATIC MALIGNANT MELANOMA
  19. LIPOSOMAL DOXORUBICIN HYDROCHLORIDE [Suspect]
     Active Substance: DOXORUBICIN HYDROCHLORIDE
     Indication: RECURRENT CANCER
     Dosage: 01 DF, CYCLICAL
     Route: 065
     Dates: start: 2009
  20. EVEROLIMUS. [Suspect]
     Active Substance: EVEROLIMUS
     Indication: BREAST CANCER METASTATIC
     Dosage: 01 DF, CYCLICAL
     Route: 065
     Dates: start: 2009
  21. EPIRUBICIN [Suspect]
     Active Substance: EPIRUBICIN
     Indication: RECURRENT CANCER
  22. TRASTUZUMAB EMTANSINE [Suspect]
     Active Substance: ADO-TRASTUZUMAB EMTANSINE
     Indication: BREAST CANCER METASTATIC
     Dosage: 01 DF, CYCLICAL
     Route: 065
     Dates: start: 2009
  23. TAMOXIFEN CITRATE. [Suspect]
     Active Substance: TAMOXIFEN CITRATE
     Indication: BREAST CANCER METASTATIC
  24. EVEROLIMUS. [Suspect]
     Active Substance: EVEROLIMUS
     Indication: PROPHYLAXIS AGAINST TRANSPLANT REJECTION
  25. DOCETAXEL. [Suspect]
     Active Substance: DOCETAXEL
     Indication: BREAST CANCER METASTATIC
     Dosage: 01 DF, CYCLICAL
     Route: 065
     Dates: start: 2009
  26. ENDOXAN [CYCLOPHOSPHAMIDE] [Suspect]
     Active Substance: CYCLOPHOSPHAMIDE
     Indication: BREAST CANCER METASTATIC
     Dosage: 01 DF, CYCLICAL
     Route: 065
     Dates: start: 2006
  27. CAPECITABINE. [Suspect]
     Active Substance: CAPECITABINE
     Indication: RECURRENT CANCER
     Dosage: 1 DF, DAILY
     Route: 065
     Dates: start: 2009
  28. METHOTREXATE SODIUM. [Suspect]
     Active Substance: METHOTREXATE SODIUM
     Indication: BREAST CANCER METASTATIC
     Dosage: 01 DF, CYCLICAL
     Route: 065
     Dates: start: 2006
  29. METHOTREXATE SODIUM. [Suspect]
     Active Substance: METHOTREXATE SODIUM
     Dosage: 1 DF, DAILY
     Route: 065
     Dates: start: 2006
  30. LAPATINIB [Suspect]
     Active Substance: LAPATINIB
     Indication: RECURRENT CANCER
     Dosage: 01 DF, CYCLICAL
     Route: 065
     Dates: start: 2009
  31. LAPATINIB [Suspect]
     Active Substance: LAPATINIB
     Indication: BREAST CANCER METASTATIC
     Dosage: 1 DF, DAILY
     Route: 065
  32. LIPOSOMAL DOXORUBICIN HYDROCHLORIDE [Suspect]
     Active Substance: DOXORUBICIN HYDROCHLORIDE
     Indication: BREAST CANCER METASTATIC
     Dosage: 1 DF, DAILY
     Route: 065
     Dates: start: 2009
  33. GEMCITABINE HYDROCHLORIDE. [Suspect]
     Active Substance: GEMCITABINE HYDROCHLORIDE
     Indication: RECURRENT CANCER
     Dosage: 1 DF, DAILY
     Route: 065
     Dates: start: 2009
  34. TRASTUZUMAB EMTANSINE [Suspect]
     Active Substance: ADO-TRASTUZUMAB EMTANSINE
     Indication: RECURRENT CANCER
     Dosage: 1 DF, DAILY
     Route: 065
     Dates: start: 2009
  35. CARBOPLATIN. [Suspect]
     Active Substance: CARBOPLATIN
     Indication: RECURRENT CANCER
     Dosage: 1 DF, DAILY
     Route: 065
     Dates: start: 2009
  36. CAPECITABINE. [Suspect]
     Active Substance: CAPECITABINE
     Indication: BREAST CANCER METASTATIC
     Dosage: 1 DF, CYCLICAL
     Route: 065
     Dates: start: 2009
  37. EVEROLIMUS. [Suspect]
     Active Substance: EVEROLIMUS
     Indication: BREAST CANCER
  38. VINORELBINE [Suspect]
     Active Substance: VINORELBINE\VINORELBINE TARTRATE
     Indication: RECURRENT CANCER
     Dosage: 1 DF, DAILY
     Route: 065
     Dates: start: 2009

REACTIONS (9)
  - Oestrogen receptor positive breast cancer [Unknown]
  - Metastases to lung [Unknown]
  - Skin mass [Unknown]
  - Recurrent cancer [Unknown]
  - Off label use [Unknown]
  - Metastases to bone [Unknown]
  - Metastases to lymph nodes [Unknown]
  - Metastases to skin [Unknown]
  - Malignant neoplasm progression [Unknown]

NARRATIVE: CASE EVENT DATE: 2009
